FAERS Safety Report 10233732 (Version 1)
Quarter: 2014Q2

REPORT INFORMATION
  Report Type: Spontaneous
  Country: GB (occurrence: GB)
  Receive Date: 20140612
  Receipt Date: 20140612
  Transmission Date: 20141212
  Serious: Yes (Death, Other)
  Sender: FDA-Public Use
  Company Number: GB-BANPHARM-20142770

PATIENT
  Sex: Male
  Weight: .79 kg

DRUGS (2)
  1. IBUPROFEN UNKNOWN PRODUCT [Suspect]
     Indication: PATENT DUCTUS ARTERIOSUS
     Dosage: 10 MG/KG (DAY 1), 5 MG/KG (DAY 2 + 3)
     Route: 042
     Dates: start: 20131103, end: 20131105
  2. CUROSURF (PORACTANT ALFA) [Concomitant]

REACTIONS (2)
  - Intestinal perforation [Fatal]
  - Necrotising colitis [Fatal]
